FAERS Safety Report 7737585-3 (Version None)
Quarter: 2011Q3

REPORT INFORMATION
  Report Type: 
  Country: None (occurrence: None)
  Receive Date: 20110908
  Receipt Date: 20110902
  Transmission Date: 20111222
  Serious: Yes (Hospitalization)
  Sender: FDA-Public Use
  Company Number: CA-MERCK-1109USA00332

PATIENT
  Age: 50 Year
  Sex: Male

DRUGS (6)
  1. EMEND [Suspect]
     Dosage: THIRD DAY
     Route: 048
  2. ETOPOSIDE [Concomitant]
     Route: 065
  3. EMEND [Suspect]
     Indication: PROPHYLAXIS OF NAUSEA AND VOMITING
     Dosage: FIRST DAY
     Route: 048
  4. EMEND [Suspect]
     Dosage: SECOND DAY
     Route: 048
  5. THERAPEUTIC RADIOPHARMACEUTICAL (UNSPECIFIED) [Concomitant]
     Route: 065
  6. CISPLATIN [Concomitant]
     Route: 065

REACTIONS (1)
  - OESOPHAGITIS [None]
